FAERS Safety Report 5024353-9 (Version None)
Quarter: 2006Q2

REPORT INFORMATION
  Report Type: 
  Country: None (occurrence: None)
  Receive Date: 20060426
  Receipt Date: 20060308
  Transmission Date: 20061013
  Serious: Yes (Other)
  Sender: FDA-Public Use
  Company Number: 2006034369

PATIENT
  Sex: Female

DRUGS (1)
  1. LYRICA [Suspect]
     Indication: NERVE COMPRESSION
     Dosage: 300 MG (100 MG,3 IN 1 D)
     Dates: start: 20060206

REACTIONS (3)
  - CYST [None]
  - DRY MOUTH [None]
  - OEDEMA PERIPHERAL [None]
